FAERS Safety Report 13970504 (Version 1)
Quarter: 2017Q3

REPORT INFORMATION
  Report Type: Spontaneous
  Country: IT (occurrence: IT)
  Receive Date: 20170914
  Receipt Date: 20170914
  Transmission Date: 20171128
  Serious: Yes (Other)
  Sender: FDA-Public Use
  Company Number: IT-ELI_LILLY_AND_COMPANY-IT201703001290

PATIENT
  Age: 68 Year
  Sex: Female

DRUGS (4)
  1. ATENOLOL. [Concomitant]
     Active Substance: ATENOLOL
     Indication: PRODUCT USED FOR UNKNOWN INDICATION
  2. ARMOLIPID PLUS [Concomitant]
     Active Substance: DIETARY SUPPLEMENT
     Indication: PRODUCT USED FOR UNKNOWN INDICATION
  3. FORSTEO [Suspect]
     Active Substance: TERIPARATIDE
     Indication: SPINAL COMPRESSION FRACTURE
     Dosage: UNK, UNKNOWN
     Route: 065
     Dates: start: 20170221
  4. PANTOPRAZOLE [Concomitant]
     Active Substance: PANTOPRAZOLE
     Indication: PRODUCT USED FOR UNKNOWN INDICATION

REACTIONS (9)
  - Haemorrhoids [Unknown]
  - Off label use [Not Recovered/Not Resolved]
  - Malaise [Unknown]
  - Nasal neoplasm [Unknown]
  - Heart rate increased [Unknown]
  - Pyrexia [Unknown]
  - Dizziness [Unknown]
  - Abdominal discomfort [Unknown]
  - Nausea [Unknown]

NARRATIVE: CASE EVENT DATE: 20170221
